FAERS Safety Report 15490432 (Version 2)
Quarter: 2018Q4

REPORT INFORMATION
  Report Type: Spontaneous
  Country: NL (occurrence: NL)
  Receive Date: 20181011
  Receipt Date: 20181108
  Transmission Date: 20190205
  Serious: Yes (Hospitalization, Other)
  Sender: FDA-Public Use
  Company Number: NL-NAPPMUNDI-GBR-2018-0060139

PATIENT
  Age: 20 Year
  Sex: Male

DRUGS (8)
  1. PROPOFOL. [Suspect]
     Active Substance: PROPOFOL
     Dosage: UNK (5.14 MG/(KG.H), AFTER 2 HOURS)
     Route: 065
  2. PROPOFOL. [Suspect]
     Active Substance: PROPOFOL
     Dosage: UNK (4.3 MG/(KG.H), DAY 2 OF INFUSION)
     Route: 065
  3. MIDAZOLAM [Suspect]
     Active Substance: MIDAZOLAM HYDROCHLORIDE
     Indication: SEDATION
     Dosage: 0.06 MG/KG, Q1H
     Route: 065
  4. MIDAZOLAM [Suspect]
     Active Substance: MIDAZOLAM HYDROCHLORIDE
     Indication: TONIC CLONIC MOVEMENTS
     Dosage: UNK
     Route: 065
  5. PROPOFOL. [Suspect]
     Active Substance: PROPOFOL
     Indication: SEDATION
     Dosage: UNK (7.14 MG/(KG.H))
     Route: 065
  6. NOREPINEPHRINE BITARTRATE. [Suspect]
     Active Substance: NOREPINEPHRINE BITARTRATE
     Indication: CEREBRAL HYPOPERFUSION
     Dosage: UNK (0.1-1.4 MG/H; INFUSION)
     Route: 065
  7. MORPHINE SULFATE. [Suspect]
     Active Substance: MORPHINE SULFATE
     Indication: PRODUCT USED FOR UNKNOWN INDICATION
     Dosage: UNK (0.06 MG/(KG.H))
     Route: 065
  8. PHENYTOIN. [Suspect]
     Active Substance: PHENYTOIN
     Indication: TONIC CLONIC MOVEMENTS
     Dosage: UNK
     Route: 065

REACTIONS (7)
  - Oedema [Unknown]
  - Contusion [Unknown]
  - Unresponsive to stimuli [Recovered/Resolved]
  - Myocardial necrosis marker increased [Recovered/Resolved]
  - Propofol infusion syndrome [Recovered/Resolved]
  - Electrocardiogram abnormal [Recovered/Resolved]
  - Mydriasis [Unknown]
